FAERS Safety Report 9469425 (Version 1)
Quarter: 2013Q3

REPORT INFORMATION
  Report Type: Spontaneous
  Country: US (occurrence: US)
  Receive Date: 20130822
  Receipt Date: 20130822
  Transmission Date: 20140515
  Serious: Yes (Hospitalization)
  Sender: FDA-Public Use
  Company Number: US-JNJFOC-20130804197

PATIENT
  Age: 53 Year
  Sex: Male

DRUGS (2)
  1. ZYRTEC IR 10MG TABLET [Suspect]
     Route: 048
  2. ZYRTEC IR 10MG TABLET [Suspect]
     Indication: SEASONAL ALLERGY
     Route: 048
     Dates: start: 20130730, end: 20130806

REACTIONS (1)
  - Pancreatitis acute [Not Recovered/Not Resolved]
